FAERS Safety Report 4317864-2 (Version None)
Quarter: 2004Q1

REPORT INFORMATION
  Report Type: 
  Country: None (occurrence: None)
  Receive Date: 20040312
  Receipt Date: 20040302
  Transmission Date: 20041129
  Serious: Yes (Other)
  Sender: FDA-Public Use
  Company Number: 2004202009US

PATIENT
  Age: 38 Year
  Sex: Male

DRUGS (4)
  1. DELTASONE [Suspect]
     Indication: VOGT-KOYANAGI-HARADA SYNDROME
     Dosage: 60 MG, QD;  5 MG, QD;  10 MG, QD;  100 MG, QD
  2. METHOTREXATE [Concomitant]
  3. TRIAMCINOLONE ACETONIDE [Concomitant]
  4. TRIAMCINOLONE [Concomitant]

REACTIONS (6)
  - CONVULSION [None]
  - HEADACHE [None]
  - LOSS OF CONSCIOUSNESS [None]
  - NEUROCYSTICERCOSIS [None]
  - RETINOPATHY [None]
  - SYNCOPE [None]
